FAERS Safety Report 4507756-8 (Version None)
Quarter: 2004Q4

REPORT INFORMATION
  Report Type: 
  Country: None (occurrence: None)
  Receive Date: 20041123
  Receipt Date: 20041115
  Transmission Date: 20050328
  Serious: Yes (Other)
  Sender: FDA-Public Use
  Company Number: 200421407GDDC

PATIENT
  Age: 41 Year
  Sex: Male
  Weight: 48 kg

DRUGS (2)
  1. RIFAMPIN AND ISONIAZID [Suspect]
     Indication: TUBERCULOSIS
  2. METHADONE [Concomitant]

REACTIONS (6)
  - CONDITION AGGRAVATED [None]
  - HEPATIC FAILURE [None]
  - NECROSIS [None]
  - REFUSAL OF TREATMENT BY PATIENT [None]
  - RENAL IMPAIRMENT [None]
  - VOMITING [None]
